FAERS Safety Report 5121173-1 (Version None)
Quarter: 2006Q4

REPORT INFORMATION
  Report Type: 
  Country: None (occurrence: None)
  Receive Date: 20061002
  Receipt Date: 20060919
  Transmission Date: 20070319
  Serious: Yes (Disabling)
  Sender: FDA-Public Use
  Company Number: 2006S1000225

PATIENT
  Age: 40 Year
  Sex: Female
  Weight: 83.9154 kg

DRUGS (8)
  1. SORIATANE [Suspect]
     Indication: PSORIASIS
     Dosage: 25 MG; QD; PO
     Route: 048
     Dates: start: 20060824, end: 20060912
  2. ZYRTEC [Concomitant]
  3. CROMOLYN SODIUM [Concomitant]
  4. BENADRYL [Concomitant]
  5. ALBUTEROL [Concomitant]
  6. TAGAMET [Concomitant]
  7. TACLONEX [Concomitant]
  8. EPIPEN [Concomitant]

REACTIONS (7)
  - EATING DISORDER [None]
  - EYE PRURITUS [None]
  - FACIAL PALSY [None]
  - IMPAIRED DRIVING ABILITY [None]
  - PHOTOPHOBIA [None]
  - SPEECH DISORDER [None]
  - VISION BLURRED [None]
